FAERS Safety Report 13242393 (Version 2)
Quarter: 2017Q2

REPORT INFORMATION
  Report Type: Spontaneous
  Country: US (occurrence: US)
  Receive Date: 20170216
  Receipt Date: 20170414
  Transmission Date: 20170830
  Serious: Yes (Hospitalization)
  Sender: FDA-Public Use
  Company Number: US-DEPOMED, INC.-US-2017DEP000318

PATIENT

DRUGS (2)
  1. GRALISE [Suspect]
     Active Substance: GABAPENTIN
     Indication: SCIATICA
     Dosage: 300 MG, QD, TITRATED UP TO 1200 MG, QD
     Route: 048
     Dates: start: 20170117, end: 2017
  2. GRALISE [Suspect]
     Active Substance: GABAPENTIN
     Dosage: 900 MG, QD, DECREASED TITRATION TO 300 MG, QD, THEN STOPPED MEDICATION
     Route: 048
     Dates: start: 201701, end: 20170122

REACTIONS (4)
  - Product use in unapproved indication [Recovered/Resolved]
  - White blood cell count increased [Unknown]
  - Drug dose titration not performed [Unknown]
  - Abdominal pain [Recovered/Resolved]

NARRATIVE: CASE EVENT DATE: 20170117
